FAERS Safety Report 7491191-7 (Version None)
Quarter: 2011Q2

REPORT INFORMATION
  Report Type: 
  Country: None (occurrence: None)
  Receive Date: 20110519
  Receipt Date: 20110425
  Transmission Date: 20111010
  Serious: Yes (Other)
  Sender: FDA-Public Use
  Company Number: ES-JNJFOC-20110411603

PATIENT
  Age: 46 Year
  Sex: Male

DRUGS (6)
  1. PREZISTA [Interacting]
     Indication: HIV INFECTION
     Route: 048
     Dates: start: 20091201
  2. ABACAVIR SULFATE AND LAMIVUDINE [Interacting]
     Indication: HIV INFECTION
     Route: 048
     Dates: start: 20091201
  3. MIRTAZAPINE [Interacting]
     Indication: DEPRESSION
     Route: 048
     Dates: start: 20100419, end: 20100902
  4. PAROXETINE HCL [Interacting]
     Indication: ANXIETY
     Route: 048
     Dates: start: 20100522, end: 20100902
  5. RISPERIDONE [Suspect]
     Indication: AGGRESSION
     Route: 048
     Dates: start: 20100505, end: 20101101
  6. NORVIR [Interacting]
     Indication: HIV INFECTION
     Route: 048
     Dates: start: 20091201

REACTIONS (2)
  - DRUG INTERACTION [None]
  - ABNORMAL WEIGHT GAIN [None]
